FAERS Safety Report 6576474-7 (Version None)
Quarter: 2010Q1

REPORT INFORMATION
  Report Type: 
  Country: None (occurrence: None)
  Receive Date: 20100210
  Receipt Date: 20091221
  Transmission Date: 20100710
  Serious: No
  Sender: FDA-Public Use
  Company Number: A0833897A

PATIENT
  Age: 6 Year
  Sex: Male
  Weight: 56 kg

DRUGS (2)
  1. ALTABAX [Suspect]
     Indication: IMPETIGO
     Route: 061
     Dates: start: 20091203, end: 20091203
  2. FLOVENT [Concomitant]
     Dates: start: 20090828, end: 20090901

REACTIONS (2)
  - ERYTHEMA [None]
  - PRURITUS [None]
